FAERS Safety Report 10566392 (Version 1)
Quarter: 2014Q4

REPORT INFORMATION
  Report Type: Report from Study
  Country: US (occurrence: US)
  Receive Date: 20141105
  Receipt Date: 20141105
  Transmission Date: 20150529
  Serious: Yes (Hospitalization, Other)
  Sender: FDA-Public Use
  Company Number: US-BRISTOL-MYERS SQUIBB COMPANY-21540091

PATIENT
  Age: 55 Year
  Sex: Male
  Weight: 107.9 kg

DRUGS (16)
  1. METFORMIN [Concomitant]
     Active Substance: METFORMIN HYDROCHLORIDE
  2. COZAAR [Concomitant]
     Active Substance: LOSARTAN POTASSIUM
  3. TESTOSTERONE. [Concomitant]
     Active Substance: TESTOSTERONE
  4. LANTUS [Concomitant]
     Active Substance: INSULIN GLARGINE
  5. IPILIMUMAB [Suspect]
     Active Substance: IPILIMUMAB
     Indication: METASTATIC MALIGNANT MELANOMA
     Dosage: STR:10 MG/KG?9/9/13, 12/30/13, 1/23/14?LAST DOSE:1/23/2014
     Route: 042
     Dates: start: 20130819
  6. FLUCONAZOLE. [Concomitant]
     Active Substance: FLUCONAZOLE
  7. PLAVIX [Concomitant]
     Active Substance: CLOPIDOGREL BISULFATE
  8. INTERFERON ALFA-2B [Suspect]
     Active Substance: INTERFERON ALFA-2B
     Indication: METASTATIC MALIGNANT MELANOMA
     Dosage: STRENGTH: L0MILLION UNITS/M2?8/19/13-9/13/13 ?12/30/13-2/19/14
     Route: 058
     Dates: start: 20130819
  9. NEUTRAPHOS [Concomitant]
  10. METOPROLOL [Concomitant]
     Active Substance: METOPROLOL
  11. TRICOR [Concomitant]
     Active Substance: FENOFIBRATE
  12. ASPIRIN. [Concomitant]
     Active Substance: ASPIRIN
  13. LIPITOR [Concomitant]
     Active Substance: ATORVASTATIN CALCIUM
  14. HYDROCORTISONE. [Concomitant]
     Active Substance: HYDROCORTISONE
  15. NOVOLOG [Concomitant]
     Active Substance: INSULIN ASPART
  16. SYNTHROID [Concomitant]
     Active Substance: LEVOTHYROXINE SODIUM

REACTIONS (2)
  - Coronary artery disease [Unknown]
  - Diaphragmatic disorder [Unknown]

NARRATIVE: CASE EVENT DATE: 20140430
